FAERS Safety Report 20051109 (Version 2)
Quarter: 2022Q1

REPORT INFORMATION
  Report Type: Other
  Country: US (occurrence: None)
  Receive Date: 20211110
  Receipt Date: 20220108
  Transmission Date: 20220423
  Serious: Yes (Life-Threatening)
  Sender: FDA-Public Use
  Company Number: US-ROCHE-2951123

PATIENT
  Sex: Female

DRUGS (3)
  1. ALECENSA [Suspect]
     Active Substance: ALECTINIB HYDROCHLORIDE
     Indication: Lung neoplasm malignant
     Dosage: TAKE 3 CAPSULE(S) TWICE A DAY WITH FOOD
     Route: 048
     Dates: end: 202006
  2. ALECENSA [Suspect]
     Active Substance: ALECTINIB HYDROCHLORIDE
     Dosage: TAKE 3 CAPSULE(S) TWICE A DAY WITH FOOD
     Route: 048
  3. ALECENSA [Suspect]
     Active Substance: ALECTINIB HYDROCHLORIDE
     Dosage: TAKE 3 CAPSULE(S) TWICE A DAY WITH FOOD
     Route: 048
     Dates: start: 20181024, end: 20200527

REACTIONS (3)
  - Neoplasm recurrence [Unknown]
  - Fatigue [Unknown]
  - Dyspnoea [Unknown]
